FAERS Safety Report 20348472 (Version 1)
Quarter: 2022Q1

REPORT INFORMATION
  Report Type: Spontaneous
  Country: CN (occurrence: CN)
  Receive Date: 20220119
  Receipt Date: 20220119
  Transmission Date: 20220423
  Serious: Yes (Other)
  Sender: FDA-Public Use
  Company Number: CN-009507513-2201CHN003100

PATIENT
  Age: 80 Year
  Sex: Male

DRUGS (2)
  1. INVANZ [Suspect]
     Active Substance: ERTAPENEM SODIUM
     Indication: Abdominal infection
     Dosage: 1 G, ONCE A DAY (QD)
     Route: 041
     Dates: start: 20220107, end: 20220108
  2. INVANZ [Suspect]
     Active Substance: ERTAPENEM SODIUM
     Indication: Sepsis

REACTIONS (1)
  - Epilepsy [Recovering/Resolving]

NARRATIVE: CASE EVENT DATE: 20220108
